FAERS Safety Report 7192977-9 (Version None)
Quarter: 2010Q4

REPORT INFORMATION
  Report Type: 
  Country: None (occurrence: None)
  Receive Date: 20101221
  Receipt Date: 20101221
  Transmission Date: 20110411
  Serious: No
  Sender: FDA-Public Use
  Company Number: None

PATIENT
  Age: 5 Year
  Sex: Male
  Weight: 16.3295 kg

DRUGS (2)
  1. ZYRTEC [Suspect]
     Indication: MULTIPLE ALLERGIES
     Dosage: 5MG./10MG. 1 TO 2 DAILY PO
     Route: 048
     Dates: start: 20060501, end: 20090301
  2. ZYRTEC [Suspect]
     Indication: MULTIPLE ALLERGIES
     Dosage: 5MG./10MG. 1 TO 2 DAILY PO
     Route: 048
     Dates: start: 20101001, end: 20101217

REACTIONS (2)
  - ABNORMAL BEHAVIOUR [None]
  - DEPRESSION SUICIDAL [None]
